FAERS Safety Report 25195943 (Version 1)
Quarter: 2025Q2

REPORT INFORMATION
  Report Type: Spontaneous
  Country: HR (occurrence: HR)
  Receive Date: 20250415
  Receipt Date: 20250415
  Transmission Date: 20250717
  Serious: Yes (Other)
  Sender: JOHNSON AND JOHNSON
  Company Number: HR-JNJFOC-20250409114

PATIENT
  Age: 69 Year
  Sex: Male

DRUGS (1)
  1. ERLEADA [Suspect]
     Active Substance: APALUTAMIDE
     Indication: Prostate cancer
     Route: 048
     Dates: start: 202404

REACTIONS (2)
  - Proctectomy [Unknown]
  - Nausea [Unknown]

NARRATIVE: CASE EVENT DATE: 20240501
